FAERS Safety Report 4659105-2 (Version None)
Quarter: 2005Q2

REPORT INFORMATION
  Report Type: 
  Country: None (occurrence: None)
  Receive Date: 20050509
  Receipt Date: 20050404
  Transmission Date: 20051028
  Serious: Yes (Death)
  Sender: FDA-Public Use
  Company Number: 200510904GDS

PATIENT
  Sex: Female
  Weight: 0.78 kg

DRUGS (2)
  1. NIFEDIPINE [Suspect]
     Indication: PREMATURE LABOUR
     Dosage: 40 MG, TOTAL DAILY, TRANSPLACENTAL
     Route: 064
  2. NIFEDIPINE [Suspect]
     Indication: PREMATURE LABOUR
     Dosage: 40 MG, TOTAL DAILY, TRANSPLACENTAL
     Route: 064

REACTIONS (6)
  - BRADYCARDIA FOETAL [None]
  - DRUG EXPOSURE DURING PREGNANCY [None]
  - INFARCTION [None]
  - INTRA-UTERINE DEATH [None]
  - PLACENTAL DISORDER [None]
  - UMBILICAL CORD ABNORMALITY [None]
